FAERS Safety Report 17440853 (Version 1)
Quarter: 2020Q1

REPORT INFORMATION
  Report Type: Spontaneous
  Country: FR (occurrence: FR)
  Receive Date: 20200220
  Receipt Date: 20200220
  Transmission Date: 20200409
  Serious: Yes (Hospitalization, Other)
  Sender: FDA-Public Use
  Company Number: FR-SA-2020SA039438

PATIENT
  Age: 86 Year
  Sex: Male

DRUGS (9)
  1. ELIQUIS [Concomitant]
     Active Substance: APIXABAN
     Dosage: 2 DF, QD
     Route: 048
  2. ADENURIC [Concomitant]
     Active Substance: FEBUXOSTAT
     Dosage: UNSPECIFIED
     Route: 048
  3. SERETIDE [Concomitant]
     Active Substance: FLUTICASONE PROPIONATE\SALMETEROL XINAFOATE
     Dosage: UNSPECIFIED
     Route: 055
  4. COAPROVEL [Suspect]
     Active Substance: HYDROCHLOROTHIAZIDE\IRBESARTAN
     Indication: ISCHAEMIC CARDIOMYOPATHY
     Dosage: UNSPECIFIED
     Route: 048
  5. AMIODARONE [Concomitant]
     Active Substance: AMIODARONE
     Dosage: UNSPECIFIED
     Route: 048
  6. COLCHICINE. [Concomitant]
     Active Substance: COLCHICINE
     Indication: GOUT
     Dosage: UNSPECIFIED
     Route: 048
     Dates: end: 20190403
  7. NEBILOX [Concomitant]
     Active Substance: NEBIVOLOL HYDROCHLORIDE
     Dosage: UNSPECIFIED
     Route: 048
  8. ENTRESTO [Suspect]
     Active Substance: SACUBITRIL\VALSARTAN
     Indication: ISCHAEMIC CARDIOMYOPATHY
     Dosage: UNSPECIFIED
     Route: 048
  9. XATRAL [Concomitant]
     Active Substance: ALFUZOSIN
     Dosage: UNSPECIFIED

REACTIONS (1)
  - Acute kidney injury [Recovered/Resolved]

NARRATIVE: CASE EVENT DATE: 20190403
